FAERS Safety Report 13428554 (Version 3)
Quarter: 2017Q3

REPORT INFORMATION
  Report Type: Report from Study
  Country: US (occurrence: US)
  Receive Date: 20170411
  Receipt Date: 20170818
  Transmission Date: 20171127
  Serious: Yes (Hospitalization, Other)
  Sender: FDA-Public Use
  Company Number: US-BAYER-2017-063397

PATIENT
  Age: 86 Year
  Sex: Female

DRUGS (13)
  1. TRAMADOL HYDROCHLORIDE. [Concomitant]
     Active Substance: TRAMADOL HYDROCHLORIDE
     Dosage: UNK
     Dates: start: 20170508
  2. TURMERIC [Concomitant]
     Active Substance: HERBALS\TURMERIC
     Dosage: UNK
     Dates: start: 20170306
  3. STIVARGA [Suspect]
     Active Substance: REGORAFENIB
     Indication: SOFT TISSUE SARCOMA
     Dosage: 120 MG, QD FOR 21 DAYS
     Route: 048
     Dates: start: 201703, end: 20170323
  4. STIVARGA [Suspect]
     Active Substance: REGORAFENIB
     Indication: GASTROINTESTINAL CARCINOMA
     Dosage: 120 MG, QD X 21 DAYS
     Route: 048
     Dates: start: 20170531
  5. COCONUT OIL [Concomitant]
     Active Substance: COCONUT OIL
     Dosage: UNK
     Dates: start: 20170306
  6. PRESERVISION EYE VITAMIN AND MINERAL SUPPL. [Concomitant]
     Dosage: UNK
     Dates: start: 20160927
  7. MULTIPLE VITAMINS [Concomitant]
     Active Substance: VITAMINS
     Dosage: UNK
     Dates: start: 20160927
  8. STIVARGA [Suspect]
     Active Substance: REGORAFENIB
     Indication: GASTROINTESTINAL CARCINOMA
     Dosage: 120 MG, QD X 3 WEEKS
     Route: 048
     Dates: start: 2017, end: 20170803
  9. LEVOTHYROXIN [Concomitant]
     Active Substance: LEVOTHYROXINE
     Dosage: UNK
     Dates: start: 20160927
  10. ZINC. [Concomitant]
     Active Substance: ZINC
     Dosage: OCCASIONALLY
     Dates: start: 20160927
  11. CINNAMON. [Concomitant]
     Active Substance: CINNAMON
     Dosage: UNK
     Dates: start: 20170306
  12. HUMA-METOPROL [Concomitant]
     Dosage: UNK
     Dates: start: 20160927
  13. STIVARGA [Suspect]
     Active Substance: REGORAFENIB
     Indication: GASTROINTESTINAL CARCINOMA
     Dosage: 160 MG, QD FOR 21 DAYS
     Route: 048
     Dates: start: 20170308, end: 20170329

REACTIONS (8)
  - Product use in unapproved indication [None]
  - Fall [None]
  - Gastrointestinal carcinoma [None]
  - Dizziness [None]
  - Drug ineffective [None]
  - Fatigue [Recovering/Resolving]
  - Dehydration [Recovering/Resolving]
  - Off label use [None]

NARRATIVE: CASE EVENT DATE: 20170327
